FAERS Safety Report 24701179 (Version 1)
Quarter: 2024Q4

REPORT INFORMATION
  Report Type: Spontaneous
  Country: FR (occurrence: FR)
  Receive Date: 20241205
  Receipt Date: 20241205
  Transmission Date: 20250115
  Serious: Yes (Hospitalization)
  Sender: MYLAN
  Company Number: None

PATIENT
  Age: 90 Year
  Sex: Male
  Weight: 73.5 kg

DRUGS (3)
  1. TAHOR [Suspect]
     Active Substance: ATORVASTATIN CALCIUM
     Indication: Cardiovascular event prophylaxis
     Dosage: 40 FEMTOMOLE PER MILLIGRAM
     Route: 048
     Dates: start: 20241008, end: 20241009
  2. OMNIPAQUE [Suspect]
     Active Substance: IOHEXOL
     Indication: Imaging procedure
     Dosage: 85 MILLILITER, 1 TOTAL
     Route: 042
     Dates: start: 20241002
  3. OMNIPAQUE [Suspect]
     Active Substance: IOHEXOL
     Dosage: 95 MILLILITER, 1 TOTAL
     Route: 042
     Dates: start: 20241009

REACTIONS (2)
  - Condition aggravated [Recovered/Resolved]
  - Rash maculo-papular [Recovered/Resolved]

NARRATIVE: CASE EVENT DATE: 20241008
